FAERS Safety Report 11729556 (Version 1)
Quarter: 2015Q4

REPORT INFORMATION
  Report Type: Spontaneous
  Country: CN (occurrence: CN)
  Receive Date: 20151112
  Receipt Date: 20151112
  Transmission Date: 20160304
  Serious: Yes (Other)
  Sender: FDA-Public Use
  Company Number: CN-BAYER-2015-461018

PATIENT
  Age: 42 Year
  Sex: Male
  Weight: 58 kg

DRUGS (2)
  1. MOXIFLOXACIN ORAL [Suspect]
     Active Substance: MOXIFLOXACIN
     Indication: APPENDICITIS
     Dosage: 400 MG, QD
     Route: 048
  2. MOXIFLOXACIN ORAL [Suspect]
     Active Substance: MOXIFLOXACIN
     Indication: BILIARY TRACT INFECTION

REACTIONS (16)
  - Blood pressure decreased [Recovered/Resolved]
  - Paraesthesia [None]
  - Flushing [None]
  - Eyelid oedema [None]
  - Erythema [None]
  - Dyspnoea [None]
  - Obstruction [None]
  - Lip swelling [None]
  - Product use issue [None]
  - Pruritus [None]
  - Abdominal pain [None]
  - Cold sweat [None]
  - Oxygen saturation decreased [None]
  - Eye pruritus [None]
  - Peripheral swelling [None]
  - Swelling face [None]
